FAERS Safety Report 5364004-7 (Version None)
Quarter: 2007Q2

REPORT INFORMATION
  Report Type: 
  Country: None (occurrence: None)
  Receive Date: 20070620
  Receipt Date: 20070612
  Transmission Date: 20071010
  Serious: Yes (Hospitalization)
  Sender: FDA-Public Use
  Company Number: US-ELI_LILLY_AND_COMPANY-US200706002625

PATIENT
  Age: 69 Year
  Sex: Male

DRUGS (4)
  1. CYMBALTA [Suspect]
     Indication: MUSCULOSKELETAL PAIN
     Dosage: 30 MG, DAILY (1/D)
     Route: 048
     Dates: end: 20070501
  2. CYMBALTA [Suspect]
     Dosage: 60 MG, DAILY (1/D)
     Route: 048
     Dates: start: 20070501
  3. LISINOPRIL [Concomitant]
     Indication: HYPERTENSION
  4. ZOCOR [Concomitant]
     Indication: BLOOD CHOLESTEROL

REACTIONS (5)
  - BLINDNESS UNILATERAL [None]
  - DEPRESSION [None]
  - FATIGUE [None]
  - SWELLING [None]
  - TEMPORAL ARTERITIS [None]
